FAERS Safety Report 8614574-8 (Version None)
Quarter: 2012Q3

REPORT INFORMATION
  Report Type: 
  Country: None (occurrence: None)
  Receive Date: 20120823
  Receipt Date: 20120816
  Transmission Date: 20120928
  Serious: Yes (Death, Other)
  Sender: FDA-Public Use
  Company Number: US-JNJFOC-20120101906

PATIENT
  Sex: Male
  Weight: 120.66 kg

DRUGS (8)
  1. METFORMIN [Concomitant]
     Indication: TYPE 2 DIABETES MELLITUS
     Route: 065
     Dates: start: 20050101, end: 20060101
  2. LEVOXYL [Concomitant]
     Indication: HYPOTHYROIDISM
     Route: 065
     Dates: start: 19950101, end: 20060101
  3. DURAGESIC-100 [Suspect]
     Indication: FIBROMYALGIA
     Route: 062
     Dates: start: 19900101, end: 20060101
  4. DURAGESIC-100 [Suspect]
     Indication: PAIN MANAGEMENT
     Route: 062
     Dates: start: 19900101, end: 20060101
  5. CARISOPRODOL [Concomitant]
     Indication: MUSCLE SPASMS
     Route: 065
     Dates: start: 20030101, end: 20060101
  6. DURAGESIC-100 [Suspect]
     Indication: OSTEOARTHRITIS
     Route: 062
     Dates: start: 19900101, end: 20060101
  7. ELAVIL [Concomitant]
     Indication: DEPRESSION
     Route: 065
     Dates: start: 20030101, end: 20060101
  8. PROSCAR [Concomitant]
     Indication: BENIGN PROSTATIC HYPERPLASIA
     Dosage: QD EVERY DAY
     Route: 065

REACTIONS (5)
  - INAPPROPRIATE SCHEDULE OF DRUG ADMINISTRATION [None]
  - SOMNOLENCE [None]
  - WRONG TECHNIQUE IN DRUG USAGE PROCESS [None]
  - TOXICITY TO VARIOUS AGENTS [None]
  - PRODUCT QUALITY ISSUE [None]
